FAERS Safety Report 4492802-0 (Version None)
Quarter: 2004Q4

REPORT INFORMATION
  Report Type: 
  Country: None (occurrence: None)
  Receive Date: 20041103
  Receipt Date: 20041103
  Transmission Date: 20050328
  Serious: Yes (Hospitalization)
  Sender: FDA-Public Use
  Company Number: None

PATIENT
  Age: 94 Year
  Sex: Male
  Weight: 68.9467 kg

DRUGS (2)
  1. PROCARBAZINE CYCLE 4 [Suspect]
     Indication: BRAIN NEOPLASM
     Dosage: 1700 MG PO OVER 5 D
     Route: 048
     Dates: start: 20040922, end: 20040926
  2. THALIDOMIDE CYCLE 4 [Suspect]
     Indication: BRAIN NEOPLASM
     Dosage: 800 MG PO WITH HS
     Route: 048
     Dates: start: 20040727

REACTIONS (6)
  - APHASIA [None]
  - ASTHENIA [None]
  - BRAIN COMPRESSION [None]
  - BRAIN OEDEMA [None]
  - MENTAL STATUS CHANGES [None]
  - PARALYSIS FLACCID [None]
